FAERS Safety Report 6328067-4 (Version None)
Quarter: 2009Q3

REPORT INFORMATION
  Report Type: 
  Country: None (occurrence: None)
  Receive Date: 20090825
  Receipt Date: 20081104
  Transmission Date: 20100115
  Serious: No
  Sender: FDA-Public Use
  Company Number: US-ABBOTT-08P-163-0485708-00

PATIENT
  Sex: Female
  Weight: 70.824 kg

DRUGS (1)
  1. SYNTHROID [Suspect]
     Indication: HYPOTHYROIDISM
     Route: 048
     Dates: start: 19970101

REACTIONS (8)
  - ASTHENIA [None]
  - DRY THROAT [None]
  - DYSPNOEA [None]
  - POLLAKIURIA [None]
  - RENAL FAILURE [None]
  - RESPIRATORY TRACT CONGESTION [None]
  - THROAT TIGHTNESS [None]
  - UNEVALUABLE EVENT [None]
